FAERS Safety Report 23552807 (Version 2)
Quarter: 2024Q2

REPORT INFORMATION
  Report Type: Report from Study
  Country: US (occurrence: US)
  Receive Date: 20240222
  Receipt Date: 20240401
  Transmission Date: 20240716
  Serious: Yes (Other)
  Sender: FDA-Public Use
  Company Number: US-MYLANLABS-2023M1080865

PATIENT
  Sex: Female
  Weight: 58.51 kg

DRUGS (2)
  1. GLATIRAMER ACETATE [Suspect]
     Active Substance: GLATIRAMER ACETATE
     Indication: Multiple sclerosis
     Dosage: 40 MILLIGRAM, 3XW
     Route: 058
  2. GLATIRAMER ACETATE [Suspect]
     Active Substance: GLATIRAMER ACETATE
     Dosage: 40 MILLIGRAM, 3XW
     Route: 065

REACTIONS (12)
  - Paralysis [Unknown]
  - Multiple sclerosis [Unknown]
  - Defaecation urgency [Unknown]
  - Aphasia [Unknown]
  - Abdominal pain [Unknown]
  - Feeling abnormal [Unknown]
  - Feeling hot [Recovered/Resolved]
  - Injection site pain [Unknown]
  - Injection site warmth [Unknown]
  - Dyspnoea [Recovered/Resolved]
  - Chills [Recovered/Resolved]
  - Drug ineffective [Unknown]
